FAERS Safety Report 7109678-5 (Version None)
Quarter: 2010Q4

REPORT INFORMATION
  Report Type: 
  Country: None (occurrence: None)
  Receive Date: 20101115
  Receipt Date: 20101115
  Transmission Date: 20110411
  Serious: Yes (Death, Hospitalization)
  Sender: FDA-Public Use
  Company Number: None

PATIENT
  Sex: Female
  Weight: 113.4 kg

DRUGS (4)
  1. CARBOPLATIN [Suspect]
     Dosage: 704 MG
     Dates: end: 20101026
  2. TAXOL [Suspect]
     Dosage: 308 MG
     Dates: end: 20101102
  3. LIPITOR [Concomitant]
  4. ZOLOFT [Concomitant]

REACTIONS (10)
  - CARDIO-RESPIRATORY ARREST [None]
  - CONDITION AGGRAVATED [None]
  - CONTINUOUS HAEMODIAFILTRATION [None]
  - DEHYDRATION [None]
  - HAEMATOCRIT DECREASED [None]
  - HYPOTENSION [None]
  - METABOLIC ACIDOSIS [None]
  - PAIN [None]
  - PULMONARY CONGESTION [None]
  - RENAL FAILURE [None]
